FAERS Safety Report 18011515 (Version 5)
Quarter: 2025Q3

REPORT INFORMATION
  Report Type: Spontaneous
  Country: EU (occurrence: EU)
  Receive Date: 20200713
  Receipt Date: 20250812
  Transmission Date: 20251021
  Serious: Yes (Life-Threatening, Hospitalization, Congenital Anomaly, Other)
  Sender: CELLTRION
  Company Number: EU-CELLTRION INC.-2020DE024043

PATIENT

DRUGS (45)
  1. RITUXIMAB [Suspect]
     Active Substance: RITUXIMAB
     Indication: Burkitt^s lymphoma stage IV
     Route: 064
  2. RITUXIMAB [Suspect]
     Active Substance: RITUXIMAB
     Route: 064
  3. RITUXIMAB [Suspect]
     Active Substance: RITUXIMAB
     Route: 064
  4. RITUXIMAB [Suspect]
     Active Substance: RITUXIMAB
     Route: 064
  5. RITUXIMAB [Suspect]
     Active Substance: RITUXIMAB
     Route: 064
  6. RITUXIMAB [Suspect]
     Active Substance: RITUXIMAB
     Route: 064
  7. VINCRISTINE [Suspect]
     Active Substance: VINCRISTINE
     Indication: Burkitt^s lymphoma stage IV
     Route: 064
  8. VINCRISTINE [Suspect]
     Active Substance: VINCRISTINE
     Route: 064
  9. VINCRISTINE [Suspect]
     Active Substance: VINCRISTINE
     Route: 064
  10. VINCRISTINE [Suspect]
     Active Substance: VINCRISTINE
     Route: 064
  11. VINCRISTINE [Suspect]
     Active Substance: VINCRISTINE
     Route: 064
  12. CYCLOPHOSPHAMIDE [Suspect]
     Active Substance: CYCLOPHOSPHAMIDE
     Indication: Burkitt^s lymphoma
     Route: 064
  13. CYCLOPHOSPHAMIDE [Suspect]
     Active Substance: CYCLOPHOSPHAMIDE
     Route: 064
  14. CYCLOPHOSPHAMIDE [Suspect]
     Active Substance: CYCLOPHOSPHAMIDE
     Route: 064
  15. CYCLOPHOSPHAMIDE [Suspect]
     Active Substance: CYCLOPHOSPHAMIDE
     Route: 064
  16. CYCLOPHOSPHAMIDE [Suspect]
     Active Substance: CYCLOPHOSPHAMIDE
     Route: 064
  17. CYCLOPHOSPHAMIDE [Suspect]
     Active Substance: CYCLOPHOSPHAMIDE
     Route: 064
  18. PREDNISOLONE [Suspect]
     Active Substance: PREDNISOLONE
     Indication: Burkitt^s lymphoma stage IV
     Route: 064
  19. PREDNISOLONE [Suspect]
     Active Substance: PREDNISOLONE
     Route: 064
  20. PREDNISOLONE [Suspect]
     Active Substance: PREDNISOLONE
     Route: 064
  21. PREDNISOLONE [Suspect]
     Active Substance: PREDNISOLONE
     Route: 064
  22. PREDNISOLONE [Suspect]
     Active Substance: PREDNISOLONE
     Route: 064
  23. MESNA [Suspect]
     Active Substance: MESNA
     Indication: Drug therapy
     Route: 064
  24. DOXORUBICIN [Suspect]
     Active Substance: DOXORUBICIN
     Indication: Burkitt^s lymphoma stage IV
     Route: 064
  25. DOXORUBICIN [Suspect]
     Active Substance: DOXORUBICIN
     Route: 064
  26. DOXORUBICIN [Suspect]
     Active Substance: DOXORUBICIN
     Route: 064
  27. DOXORUBICIN [Suspect]
     Active Substance: DOXORUBICIN
     Route: 064
  28. DOXORUBICIN [Suspect]
     Active Substance: DOXORUBICIN
     Route: 064
  29. CYTARABINE [Suspect]
     Active Substance: CYTARABINE
     Indication: Nervous system disorder prophylaxis
     Route: 037
  30. CYTARABINE [Suspect]
     Active Substance: CYTARABINE
     Indication: Burkitt^s lymphoma
     Route: 064
  31. CYTARABINE [Suspect]
     Active Substance: CYTARABINE
     Route: 064
  32. CYTARABINE [Suspect]
     Active Substance: CYTARABINE
     Route: 064
  33. CYTARABINE [Suspect]
     Active Substance: CYTARABINE
     Route: 064
  34. CYTARABINE [Suspect]
     Active Substance: CYTARABINE
     Route: 064
  35. CYTARABINE [Suspect]
     Active Substance: CYTARABINE
     Indication: Nervous system disorder prophylaxis
     Route: 064
  36. CYTARABINE [Suspect]
     Active Substance: CYTARABINE
     Route: 064
  37. ETOPOSIDE [Suspect]
     Active Substance: ETOPOSIDE
     Indication: Burkitt^s lymphoma stage IV
     Route: 064
  38. ETOPOSIDE [Suspect]
     Active Substance: ETOPOSIDE
     Route: 064
  39. ETOPOSIDE [Suspect]
     Active Substance: ETOPOSIDE
     Route: 064
  40. ETOPOSIDE [Suspect]
     Active Substance: ETOPOSIDE
     Route: 064
  41. ETOPOSIDE [Suspect]
     Active Substance: ETOPOSIDE
     Route: 064
  42. FILGRASTIM [Suspect]
     Active Substance: FILGRASTIM
     Indication: Drug therapy
     Route: 064
  43. DEXAMETHASONE [Suspect]
     Active Substance: DEXAMETHASONE
     Indication: Burkitt^s lymphoma stage IV
     Route: 064
  44. DEXAMETHASONE [Suspect]
     Active Substance: DEXAMETHASONE
     Indication: Prophylaxis
  45. DEXAMETHASONE [Suspect]
     Active Substance: DEXAMETHASONE
     Indication: Burkitt^s lymphoma stage IV

REACTIONS (15)
  - Foetal growth restriction [Recovered/Resolved]
  - Low birth weight baby [Recovered/Resolved]
  - Premature baby [Unknown]
  - Plasmablast count increased [Unknown]
  - Vaccine induced antibody absent [Unknown]
  - Hypogammaglobulinaemia [Not Recovered/Not Resolved]
  - Bacterial infection [Recovered/Resolved]
  - Infection [Recovered/Resolved]
  - B-lymphocyte count decreased [Not Recovered/Not Resolved]
  - Foetal exposure during pregnancy [Unknown]
  - Combined immunodeficiency [Recovered/Resolved]
  - Plasma cells decreased [Not Recovered/Not Resolved]
  - Small for dates baby [Unknown]
  - Blood immunoglobulin A decreased [Not Recovered/Not Resolved]
  - Blood immunoglobulin G decreased [Not Recovered/Not Resolved]
